FAERS Safety Report 13003560 (Version 1)
Quarter: 2016Q4

REPORT INFORMATION
  Report Type: Spontaneous
  Country: CH (occurrence: CH)
  Receive Date: 20161206
  Receipt Date: 20161206
  Transmission Date: 20170207
  Serious: Yes (Other)
  Sender: FDA-Public Use
  Company Number: CH-PFIZER INC-2016547206

PATIENT
  Age: 64 Year
  Sex: Female

DRUGS (10)
  1. CONCOR [Concomitant]
     Active Substance: BISOPROLOL FUMARATE
     Dosage: UNK
  2. CORVATON [Concomitant]
     Active Substance: MOLSIDOMINE
     Dosage: UNK
  3. SYMFONA N [Concomitant]
     Active Substance: ORLISTAT
     Dosage: UNK
  4. FASLODEX [Suspect]
     Active Substance: FULVESTRANT
     Dosage: UNK
     Dates: start: 201610
  5. ISCADOR [Concomitant]
     Active Substance: VISCUM ALBUM FRUITING TOP
     Dosage: UNK
  6. AROMASIN [Suspect]
     Active Substance: EXEMESTANE
     Indication: BREAST CANCER METASTATIC
     Dosage: 25 MG, 1X/DAY
     Route: 048
     Dates: start: 20160517, end: 20160809
  7. EUTHYROX [Concomitant]
     Active Substance: LEVOTHYROXINE SODIUM
     Dosage: UNK
  8. LAMICTAL [Concomitant]
     Active Substance: LAMOTRIGINE
  9. CALCIMAGON D3 [Concomitant]
     Active Substance: CALCIUM\CHOLECALCIFEROL
     Dosage: UNK
  10. OMEPRAZOL [Concomitant]
     Active Substance: OMEPRAZOLE
     Dosage: UNK

REACTIONS (1)
  - Arteriospasm coronary [Recovered/Resolved]

NARRATIVE: CASE EVENT DATE: 201605
